FAERS Safety Report 10082029 (Version 4)
Quarter: 2014Q2

REPORT INFORMATION
  Report Type: Spontaneous
  Country: US (occurrence: US)
  Receive Date: 20140416
  Receipt Date: 20140605
  Transmission Date: 20141212
  Serious: Yes (Other)
  Sender: FDA-Public Use
  Company Number: US-BAYER-2014-053533

PATIENT
  Age: 21 Year
  Sex: Female
  Weight: 73 kg

DRUGS (1)
  1. MIRENA [Suspect]
     Indication: CONTRACEPTION
     Dosage: 20 MCG/24HR, CONT
     Route: 015
     Dates: start: 20120807, end: 20140221

REACTIONS (7)
  - Uterine perforation [Recovered/Resolved]
  - Caesarean section [None]
  - Pregnancy with contraceptive device [None]
  - Drug ineffective [None]
  - Peritoneal adhesions [Recovered/Resolved]
  - Premature labour [None]
  - Abdominal pain [None]
